FAERS Safety Report 15541936 (Version 1)
Quarter: 2018Q4

REPORT INFORMATION
  Report Type: Spontaneous
  Country: US (occurrence: US)
  Receive Date: 20181023
  Receipt Date: 20181023
  Transmission Date: 20190205
  Serious: Yes (Other)
  Sender: FDA-Public Use
  Company Number: US-NAPPMUNDI-USA-2018-0144690

PATIENT
  Sex: Male

DRUGS (6)
  1. OXYCONTIN [Suspect]
     Active Substance: OXYCODONE HYDROCHLORIDE
     Indication: BACK PAIN
     Dosage: 20 MG, BID
     Route: 048
     Dates: start: 201603
  2. OXYCODONE HYDROCHLORIDE. [Suspect]
     Active Substance: OXYCODONE HYDROCHLORIDE
     Indication: BACK PAIN
     Dosage: (0.5 X 5 MG) 2.5 MG, DAILY
     Route: 048
     Dates: start: 2006
  3. GABAPENTIN. [Suspect]
     Active Substance: GABAPENTIN
     Indication: PAIN
     Dosage: 600 MG, TID
     Route: 048
     Dates: start: 201806
  4. VALIUM [Suspect]
     Active Substance: DIAZEPAM
     Indication: MUSCLE CONTRACTIONS INVOLUNTARY
     Dosage: 5 MG, QID
     Route: 048
     Dates: start: 201603
  5. OXYCODONE HYDROCHLORIDE. [Suspect]
     Active Substance: OXYCODONE HYDROCHLORIDE
     Dosage: 5 MG, DAILY
     Route: 048
     Dates: start: 2003, end: 2006
  6. VALIUM [Suspect]
     Active Substance: DIAZEPAM
     Indication: MUSCLE SPASMS

REACTIONS (2)
  - Inadequate analgesia [Unknown]
  - Drug dependence [Unknown]
